APPROVED DRUG PRODUCT: BYNFEZIA PEN
Active Ingredient: OCTREOTIDE ACETATE
Strength: EQ 7MG BASE/2.8ML (EQ 2.5MG BASE/ML)
Dosage Form/Route: SOLUTION;SUBCUTANEOUS
Application: N213224 | Product #001
Applicant: SUN PHARMACEUTICAL INDUSTRIES LTD
Approved: Sep 27, 2024 | RLD: Yes | RS: Yes | Type: RX

PATENTS:
Patent 12350475 | Expires: Dec 29, 2041
Patent 12350475 | Expires: Dec 29, 2041
Patent 12350475 | Expires: Dec 29, 2041
Patent 11246991 | Expires: Nov 3, 2040
Patent 11246991 | Expires: Nov 3, 2040
Patent 11246991 | Expires: Nov 3, 2040
Patent 11534553 | Expires: Nov 3, 2040
Patent 11534553 | Expires: Nov 3, 2040
Patent 11534553 | Expires: Nov 3, 2040
Patent 11052196 | Expires: Nov 3, 2040
Patent 11052196 | Expires: Nov 3, 2040
Patent 11052196 | Expires: Nov 3, 2040
Patent 10342850 | Expires: May 15, 2038